FAERS Safety Report 5034678-9 (Version None)
Quarter: 2006Q2

REPORT INFORMATION
  Report Type: 
  Country: None (occurrence: None)
  Receive Date: 20060621
  Receipt Date: 20060605
  Transmission Date: 20061013
  Serious: Yes (Hospitalization)
  Sender: FDA-Public Use
  Company Number: 2006001163

PATIENT
  Age: 59 Year
  Sex: Female

DRUGS (7)
  1. TARCEVA [Suspect]
     Indication: ADENOCARCINOMA
     Dosage: (QD), ORAL
     Route: 048
     Dates: start: 20060520
  2. TARCEVA [Suspect]
     Indication: METASTATIC NEOPLASM
     Dosage: (QD), ORAL
     Route: 048
     Dates: start: 20060520
  3. ENOXAPARIN SODIUM [Suspect]
     Dates: start: 20060519, end: 20060522
  4. ACETAMINOPHEN [Concomitant]
  5. MEDROL ACETATE [Concomitant]
  6. ACETAMINOPHEN [Concomitant]
  7. XANAX [Concomitant]

REACTIONS (3)
  - DISSEMINATED INTRAVASCULAR COAGULATION [None]
  - THROMBOCYTOPENIA [None]
  - TUMOUR INVASION [None]
